FAERS Safety Report 20412838 (Version 1)
Quarter: 2022Q1

REPORT INFORMATION
  Report Type: Spontaneous
  Country: None (occurrence: US)
  Receive Date: 20220201
  Receipt Date: 20220201
  Transmission Date: 20220423
  Serious: No
  Sender: FDA-Public Use
  Company Number: US-Jacobus Pharmaceutical Company, Inc.-2124508

PATIENT
  Age: 52 Year
  Sex: Female

DRUGS (11)
  1. RUZURGI [Suspect]
     Active Substance: AMIFAMPRIDINE
     Indication: Myasthenic syndrome
     Route: 048
     Dates: start: 20190914
  2. SYNTHROID [Concomitant]
     Active Substance: LEVOTHYROXINE SODIUM
  3. CRESTOR [Concomitant]
     Active Substance: ROSUVASTATIN CALCIUM
  4. LEXAPRO [Concomitant]
     Active Substance: ESCITALOPRAM OXALATE
  5. CLONAZEPAM [Concomitant]
     Active Substance: CLONAZEPAM
  6. MOBIC [Concomitant]
     Active Substance: MELOXICAM
  7. CELLCEPT [Concomitant]
     Active Substance: MYCOPHENOLATE MOFETIL
  8. CATAPRES [Concomitant]
     Active Substance: CLONIDINE HYDROCHLORIDE
  9. TRAMADOL [Concomitant]
     Active Substance: TRAMADOL
  10. ESTRACE [Concomitant]
     Active Substance: ESTRADIOL
  11. XIIDRA [Concomitant]
     Active Substance: LIFITEGRAST

REACTIONS (1)
  - Laryngitis [Unknown]
